FAERS Safety Report 9403630 (Version 2)
Quarter: 2013Q3

REPORT INFORMATION
  Report Type: Spontaneous
  Country: JP (occurrence: JP)
  Receive Date: 20130717
  Receipt Date: 20130718
  Transmission Date: 20140515
  Serious: Yes (Hospitalization)
  Sender: FDA-Public Use
  Company Number: JP-ROCHE-1249388

PATIENT
  Age: 11 Year
  Sex: Female

DRUGS (3)
  1. CELLCEPT [Suspect]
     Indication: MIXED CONNECTIVE TISSUE DISEASE
     Dosage: DOSAGE IS UNCERTAIN.
     Route: 048
  2. PREDNISOLONE [Concomitant]
     Indication: MIXED CONNECTIVE TISSUE DISEASE
     Route: 065
  3. PREDNISOLONE [Concomitant]
     Indication: MIXED CONNECTIVE TISSUE DISEASE
     Route: 065

REACTIONS (2)
  - Pericarditis [Recovered/Resolved]
  - Myocarditis [Recovered/Resolved]
